FAERS Safety Report 9242734 (Version 2)
Quarter: 2014Q1

REPORT INFORMATION
  Report Type: Spontaneous
  Country: US (occurrence: US)
  Receive Date: 20130419
  Receipt Date: 20140123
  Transmission Date: 20141002
  Serious: Yes (Hospitalization)
  Sender: FDA-Public Use
  Company Number: US-JNJFOC-20130406314

PATIENT
  Age: 43 Year
  Sex: Female
  Weight: 79.83 kg

DRUGS (12)
  1. REMICADE [Suspect]
     Indication: COLITIS
     Route: 042
     Dates: start: 2003
  2. REMICADE [Suspect]
     Indication: COLITIS
     Route: 042
     Dates: start: 20130311
  3. MERCAPTOPURINE [Concomitant]
     Indication: COLITIS
     Route: 065
     Dates: start: 20130327
  4. MERCAPTOPURINE [Concomitant]
     Indication: COLITIS
     Dosage: DAILY
     Route: 065
  5. MERCAPTOPURINE [Concomitant]
     Indication: IMMUNOSUPPRESSANT DRUG THERAPY
     Dosage: DAILY
     Route: 065
  6. MERCAPTOPURINE [Concomitant]
     Indication: IMMUNOSUPPRESSANT DRUG THERAPY
     Route: 065
     Dates: start: 20130327
  7. LIALDA [Concomitant]
     Indication: COLITIS
     Route: 065
  8. PROZAC [Concomitant]
     Indication: PREMENSTRUAL SYNDROME
     Route: 065
  9. VITAMINS (NOS) [Concomitant]
     Indication: VITAMIN SUPPLEMENTATION
     Route: 065
  10. ACIDOPHILUS [Concomitant]
     Indication: MIGRAINE
     Route: 065
  11. ZANTAC [Concomitant]
     Indication: GASTROOESOPHAGEAL REFLUX DISEASE
     Route: 065
  12. MAGNESIUM [Concomitant]
     Indication: MIGRAINE
     Route: 065

REACTIONS (3)
  - Herpes zoster [Recovering/Resolving]
  - Inguinal hernia [Recovered/Resolved]
  - Endometrial ablation [Recovered/Resolved]
